FAERS Safety Report 13693308 (Version 1)
Quarter: 2017Q2

REPORT INFORMATION
  Report Type: Spontaneous
  Country: US (occurrence: US)
  Receive Date: 20170626
  Receipt Date: 20170626
  Transmission Date: 20170830
  Serious: Yes (Hospitalization, Disabling, Other)
  Sender: FDA-Public Use
  Company Number: None

PATIENT
  Age: 34 Year
  Sex: Female
  Weight: 65.25 kg

DRUGS (1)
  1. FLUCANAZOLE [Suspect]
     Active Substance: FLUCONAZOLE
     Indication: FUNGAL INFECTION
     Dosage: OTHER STRENGTH:MG;QUANTITY:2 TABLET(S);OTHER FREQUENCY:TWICE;?
     Route: 048
     Dates: start: 20170601, end: 20170623

REACTIONS (6)
  - Skin exfoliation [None]
  - Blister [None]
  - Rash [None]
  - Contusion [None]
  - Skin ulcer [None]
  - Pain of skin [None]

NARRATIVE: CASE EVENT DATE: 20170623
